FAERS Safety Report 6471908-0 (Version None)
Quarter: 2009Q4

REPORT INFORMATION
  Report Type: 
  Country: None (occurrence: None)
  Receive Date: 20091203
  Receipt Date: 20081203
  Transmission Date: 20100525
  Serious: No
  Sender: FDA-Public Use
  Company Number: US-AMGEN-KDL321893

PATIENT
  Sex: Female
  Weight: 86.3 kg

DRUGS (4)
  1. ENBREL [Suspect]
     Indication: RHEUMATOID ARTHRITIS
     Route: 058
     Dates: start: 20080506
  2. METHOTREXATE [Concomitant]
     Route: 048
     Dates: start: 20071207
  3. FOLIC ACID [Concomitant]
     Dates: start: 20071207
  4. PLAQUENIL [Concomitant]

REACTIONS (4)
  - DYSPHAGIA [None]
  - LYMPHADENOPATHY [None]
  - OROPHARYNGEAL PAIN [None]
  - UPPER RESPIRATORY TRACT INFECTION [None]
